FAERS Safety Report 4930106-X (Version None)
Quarter: 2006Q1

REPORT INFORMATION
  Report Type: 
  Country: None (occurrence: None)
  Receive Date: 20060302
  Receipt Date: 20060110
  Transmission Date: 20060701
  Serious: Yes (Other)
  Sender: FDA-Public Use
  Company Number: 2006UW01715

PATIENT
  Age: 36 Year
  Sex: Female

DRUGS (6)
  1. NEXIUM [Suspect]
     Route: 048
     Dates: start: 20040101
  2. CELEXA [Concomitant]
     Dates: start: 20040101
  3. DILAUDID [Concomitant]
  4. VENTOLIN [Concomitant]
     Dates: start: 20000101
  5. FLUTICASONE PROPIONATE [Concomitant]
     Dates: start: 20000101
  6. EFF [Concomitant]

REACTIONS (2)
  - ABORTION SPONTANEOUS [None]
  - DRUG EXPOSURE DURING PREGNANCY [None]
